FAERS Safety Report 8934608 (Version 1)
Quarter: 2012Q4

REPORT INFORMATION
  Report Type: Report from Study
  Country: US (occurrence: US)
  Receive Date: 20121129
  Receipt Date: 20121129
  Transmission Date: 20130627
  Serious: Yes (Other)
  Sender: FDA-Public Use
  Company Number: US-JNJFOC-20121111209

PATIENT
  Sex: Female

DRUGS (1)
  1. REMICADE [Suspect]
     Indication: PRODUCT USED FOR UNKNOWN INDICATION
     Route: 042

REACTIONS (5)
  - Myocardial infarction [Unknown]
  - Renal failure [Unknown]
  - Transient ischaemic attack [Unknown]
  - Graft infection [Unknown]
  - Idiopathic thrombocytopenic purpura [Unknown]
